FAERS Safety Report 4964367-8 (Version None)
Quarter: 2006Q2

REPORT INFORMATION
  Report Type: 
  Country: None (occurrence: None)
  Receive Date: 20060406
  Receipt Date: 20060202
  Transmission Date: 20061013
  Serious: Yes (Hospitalization)
  Sender: FDA-Public Use
  Company Number: 2006UW01899

PATIENT
  Age: 3 Year
  Sex: Male
  Weight: 12.7 kg

DRUGS (3)
  1. PULMICORT RESPULES [Suspect]
     Indication: CHEST DISCOMFORT
     Dosage: 0.25 MG/2 MLS BID IH
     Route: 055
     Dates: start: 20050101
  2. PULMICORT RESPULES [Suspect]
     Indication: BRONCHOSPASM
     Dosage: 0.25 MG/2 MLS BID IH
     Route: 055
     Dates: start: 20050101
  3. XOPENEX [Concomitant]

REACTIONS (5)
  - DEHYDRATION [None]
  - DIARRHOEA [None]
  - GLYCOSURIA [None]
  - HYPERGLYCAEMIA [None]
  - KETONURIA [None]
